FAERS Safety Report 7310938-3 (Version None)
Quarter: 2011Q1

REPORT INFORMATION
  Report Type: 
  Country: None (occurrence: None)
  Receive Date: 20110224
  Receipt Date: 20110214
  Transmission Date: 20110831
  Serious: Yes (Other)
  Sender: FDA-Public Use
  Company Number: PHHY2011US09508

PATIENT
  Sex: Female

DRUGS (2)
  1. GABAPENTIN [Concomitant]
     Indication: COMPLEX REGIONAL PAIN SYNDROME
     Dosage: 600 MG, TID
     Route: 048
     Dates: start: 20090801
  2. GILENYA [Suspect]
     Indication: MULTIPLE SCLEROSIS
     Dosage: 0.5 MG, DAILY
     Route: 048
     Dates: start: 20110203

REACTIONS (3)
  - BLOOD PRESSURE DECREASED [None]
  - COUGH [None]
  - FATIGUE [None]
